FAERS Safety Report 6308781-7 (Version None)
Quarter: 2009Q3

REPORT INFORMATION
  Report Type: 
  Country: None (occurrence: None)
  Receive Date: 20090813
  Receipt Date: 20080618
  Transmission Date: 20100115
  Serious: No
  Sender: FDA-Public Use
  Company Number: US-ALLERGAN-0807389US

PATIENT
  Age: 71 Year
  Sex: Male

DRUGS (8)
  1. COMBIGAN [Suspect]
     Indication: GLAUCOMA
     Route: 047
     Dates: start: 20080501
  2. LANTOS [Concomitant]
     Indication: DRUG USE FOR UNKNOWN INDICATION
  3. ACTOS [Concomitant]
     Indication: DRUG USE FOR UNKNOWN INDICATION
  4. GLUCOPHAGE [Concomitant]
     Indication: DRUG USE FOR UNKNOWN INDICATION
  5. NIASPAN [Concomitant]
     Indication: DRUG USE FOR UNKNOWN INDICATION
  6. PROPRANOLOL [Concomitant]
     Indication: DRUG USE FOR UNKNOWN INDICATION
  7. SULINDAC [Concomitant]
     Indication: DRUG USE FOR UNKNOWN INDICATION
  8. XALATAN [Concomitant]
     Indication: DRUG USE FOR UNKNOWN INDICATION

REACTIONS (3)
  - JOINT SWELLING [None]
  - PHOTOPHOBIA [None]
  - VISION BLURRED [None]
